FAERS Safety Report 18138748 (Version 1)
Quarter: 2020Q3

REPORT INFORMATION
  Report Type: Spontaneous
  Country: US (occurrence: US)
  Receive Date: 20200811
  Receipt Date: 20200811
  Transmission Date: 20201103
  Serious: No
  Sender: FDA-Public Use
  Company Number: None

PATIENT
  Age: 67 Year
  Sex: Male
  Weight: 69.85 kg

DRUGS (8)
  1. LOSARTAN. [Concomitant]
     Active Substance: LOSARTAN
  2. SUTENT [Suspect]
     Active Substance: SUNITINIB MALATE
     Indication: GASTROINTESTINAL STROMAL TUMOUR
     Route: 048
     Dates: start: 20200220, end: 20200811
  3. MULTIVITAMIN ADULT [Concomitant]
  4. MORPHINE SULFATE. [Concomitant]
     Active Substance: MORPHINE SULFATE
  5. VIT D [Concomitant]
     Active Substance: VITAMIN D NOS
  6. VIT C ER [Concomitant]
  7. SAW PALMETTO BERRIES [Concomitant]
  8. STIVARGA [Concomitant]
     Active Substance: REGORAFENIB

REACTIONS (1)
  - Disease progression [None]

NARRATIVE: CASE EVENT DATE: 20200811
